FAERS Safety Report 12058606 (Version 1)
Quarter: 2016Q1

REPORT INFORMATION
  Report Type: Report from Study
  Country: US (occurrence: US)
  Receive Date: 20160209
  Receipt Date: 20160209
  Transmission Date: 20160526
  Serious: No
  Sender: FDA-Public Use
  Company Number: US-ABBVIE-15P-163-1498491-00

PATIENT
  Age: 49 Year
  Sex: Female

DRUGS (4)
  1. PREDNISONE. [Concomitant]
     Active Substance: PREDNISONE
     Indication: PRODUCT USED FOR UNKNOWN INDICATION
  2. PREDNISONE. [Concomitant]
     Active Substance: PREDNISONE
     Dates: start: 2015
  3. HUMIRA [Suspect]
     Active Substance: ADALIMUMAB
     Indication: RHEUMATOID ARTHRITIS
     Route: 058
     Dates: start: 20151016
  4. PREDNISONE. [Concomitant]
     Active Substance: PREDNISONE
     Dates: start: 2015

REACTIONS (11)
  - Incorrect dose administered [Unknown]
  - Peripheral swelling [Not Recovered/Not Resolved]
  - Injection site pain [Unknown]
  - Joint swelling [Not Recovered/Not Resolved]
  - Rash [Unknown]
  - Device issue [Unknown]
  - Swelling face [Recovering/Resolving]
  - Drug ineffective [Not Recovered/Not Resolved]
  - Injection site haemorrhage [Unknown]
  - Contusion [Unknown]
  - Lethargy [Unknown]

NARRATIVE: CASE EVENT DATE: 2015
